FAERS Safety Report 13746549 (Version 3)
Quarter: 2017Q3

REPORT INFORMATION
  Report Type: Report from Study
  Country: US (occurrence: US)
  Receive Date: 20170712
  Receipt Date: 20170719
  Transmission Date: 20171127
  Serious: Yes (Hospitalization)
  Sender: FDA-Public Use
  Company Number: US-GILEAD-2017-0282868

PATIENT
  Age: 69 Year
  Sex: Female

DRUGS (2)
  1. AMBRISENTAN [Suspect]
     Active Substance: AMBRISENTAN
     Indication: PRODUCT USED FOR UNKNOWN INDICATION
     Dosage: 10 MG, QD
     Route: 048
  2. AMBRISENTAN [Suspect]
     Active Substance: AMBRISENTAN
     Dosage: 5 MG, QD
     Route: 065
     Dates: start: 20170627

REACTIONS (6)
  - Dyspnoea [Unknown]
  - Malaise [Unknown]
  - Feeling hot [Unknown]
  - Panic attack [Recovered/Resolved]
  - Unevaluable event [Recovered/Resolved]
  - Hypotension [Recovered/Resolved]
